FAERS Safety Report 7013603-5 (Version None)
Quarter: 2010Q3

REPORT INFORMATION
  Report Type: 
  Country: None (occurrence: None)
  Receive Date: 20100924
  Receipt Date: 20100923
  Transmission Date: 20110219
  Serious: Yes (Hospitalization)
  Sender: FDA-Public Use
  Company Number: GXKR2009DE00706

PATIENT
  Age: 67 Year
  Sex: Female

DRUGS (6)
  1. FUROSEMIDE (NGX) [Suspect]
     Indication: OEDEMA
     Dosage: 40 MG, QD
     Route: 048
     Dates: end: 20081008
  2. MADOPAR [Suspect]
     Indication: PARKINSON'S DISEASE
     Dosage: 1 DF, TID
     Route: 048
  3. RISPERDAL [Suspect]
     Indication: SCHIZOPHRENIA
     Dosage: 1 MG, QD
     Dates: end: 20081014
  4. RADEDORM [Suspect]
     Indication: SLEEP DISORDER
     Dosage: 2.5 MG, QD
  5. SPIRONOLACTONE [Concomitant]
     Indication: OEDEMA
     Dosage: 25 MG, QD
     Route: 048
  6. AKINETON [Concomitant]

REACTIONS (1)
  - SYNCOPE [None]
